FAERS Safety Report 11165440 (Version 4)
Quarter: 2015Q4

REPORT INFORMATION
  Report Type: Spontaneous
  Country: US (occurrence: US)
  Receive Date: 20150604
  Receipt Date: 20151221
  Transmission Date: 20160304
  Serious: Yes (Other)
  Sender: FDA-Public Use
  Company Number: US-GLAXOSMITHKLINE-US2015074022

PATIENT
  Age: 59 Year
  Sex: Female

DRUGS (12)
  1. ALLEGRA [Concomitant]
     Active Substance: FEXOFENADINE HYDROCHLORIDE
  2. XOPENEX NEBULIZER [Concomitant]
  3. LAMICTAL [Suspect]
     Active Substance: LAMOTRIGINE
     Indication: MOVEMENT DISORDER
  4. LAMICTAL [Suspect]
     Active Substance: LAMOTRIGINE
     Indication: MEMORY IMPAIRMENT
  5. LAMOTRIGINE. [Suspect]
     Active Substance: LAMOTRIGINE
  6. LAMICTAL XR [Suspect]
     Active Substance: LAMOTRIGINE
     Dosage: 50 MG, BID
     Dates: start: 20150624
  7. LASIX [Concomitant]
     Active Substance: FUROSEMIDE
  8. LAMICTAL [Suspect]
     Active Substance: LAMOTRIGINE
     Indication: SEIZURE
     Dosage: 25 MG, UNK
     Route: 048
  9. LAMICTAL [Suspect]
     Active Substance: LAMOTRIGINE
     Indication: CEREBRAL DISORDER
     Dosage: 50 MG, BID
     Dates: start: 201506
  10. PERCOCET [Concomitant]
     Active Substance: ACETAMINOPHEN\OXYCODONE HYDROCHLORIDE
  11. NASONEX [Concomitant]
     Active Substance: MOMETASONE FUROATE
  12. NEXIUM [Concomitant]
     Active Substance: ESOMEPRAZOLE MAGNESIUM

REACTIONS (12)
  - Fatigue [Recovered/Resolved]
  - Swollen tongue [Recovered/Resolved]
  - Rash [Recovered/Resolved]
  - Seizure [Recovered/Resolved]
  - Product quality issue [Unknown]
  - Throat tightness [Recovered/Resolved]
  - Drug ineffective [Unknown]
  - Asthma [Recovered/Resolved]
  - Throat irritation [Not Recovered/Not Resolved]
  - Wheezing [Recovered/Resolved]
  - Pruritus [Recovered/Resolved]
  - Depression [Recovered/Resolved]

NARRATIVE: CASE EVENT DATE: 201506
